FAERS Safety Report 5154112-8 (Version None)
Quarter: 2006Q4

REPORT INFORMATION
  Report Type: 
  Country: None (occurrence: None)
  Receive Date: 20061120
  Receipt Date: 20060914
  Transmission Date: 20070319
  Serious: Yes (Death)
  Sender: FDA-Public Use
  Company Number: US-MERCK-0609USA03406

PATIENT
  Age: 52 Year

DRUGS (2)
  1. PRINIVIL [Suspect]
     Route: 048
  2. METOPROLOL [Suspect]
     Route: 065

REACTIONS (2)
  - COMPLETED SUICIDE [None]
  - INTENTIONAL OVERDOSE [None]
